FAERS Safety Report 9079279 (Version 3)
Quarter: 2013Q1

REPORT INFORMATION
  Report Type: Spontaneous
  Country: DE (occurrence: DE)
  Receive Date: 20130122
  Receipt Date: 20130308
  Transmission Date: 20140127
  Serious: Yes (Hospitalization)
  Sender: FDA-Public Use
  Company Number: DE-009507513-1301DEU005422

PATIENT
  Age: 84 Year
  Sex: Male
  Weight: 85 kg

DRUGS (9)
  1. XELEVIA [Suspect]
     Indication: TYPE 2 DIABETES MELLITUS
     Dosage: UNK
     Route: 048
     Dates: start: 201110
  2. XELEVIA [Interacting]
     Dosage: UNK
     Route: 048
     Dates: start: 2010
  3. MARCUMAR [Interacting]
     Indication: CARDIAC DISORDER
     Dosage: UNK
     Route: 048
     Dates: start: 20121015
  4. GLIBENCLAMID [Concomitant]
     Indication: TYPE 2 DIABETES MELLITUS
  5. HYDROCHLOROTHIAZIDE (+) RAMIPRIL [Concomitant]
  6. FUROSEMIDE [Concomitant]
  7. METOPROLOL [Concomitant]
     Dosage: UNK
     Dates: start: 2003
  8. NITROGLYCERIN [Concomitant]
  9. ASPIRIN [Concomitant]
     Dosage: UNK
     Dates: end: 20121015

REACTIONS (5)
  - Cardiac disorder [Unknown]
  - Drug ineffective [Unknown]
  - Wound [Not Recovered/Not Resolved]
  - Blood glucose increased [Recovering/Resolving]
  - Drug interaction [Unknown]
